FAERS Safety Report 11653673 (Version 5)
Quarter: 2016Q2

REPORT INFORMATION
  Report Type: Report from Study
  Country: US (occurrence: US)
  Receive Date: 20151022
  Receipt Date: 20160422
  Transmission Date: 20160815
  Serious: Yes (Other)
  Sender: FDA-Public Use
  Company Number: US-MALLINCKRODT-T201503947

PATIENT
  Age: 17 Year
  Sex: Female

DRUGS (3)
  1. OXYGEN. [Concomitant]
     Active Substance: OXYGEN
     Dosage: 2L - ON THERAPY 24/7
  2. IMITREX [Suspect]
     Active Substance: SUMATRIPTAN SUCCINATE
  3. REPOSITORY CORTICOTROPIN INJECTION [Suspect]
     Active Substance: CORTICOTROPIN
     Indication: SYSTEMIC LUPUS ERYTHEMATOSUS
     Dosage: 80 UNITS TWICE PER WEEK
     Route: 058
     Dates: start: 20150101

REACTIONS (12)
  - Vascular access complication [Not Recovered/Not Resolved]
  - Bronchitis [Not Recovered/Not Resolved]
  - Hypoxia [Not Recovered/Not Resolved]
  - Serum serotonin decreased [Not Recovered/Not Resolved]
  - Viral infection [Not Recovered/Not Resolved]
  - Scar [Not Recovered/Not Resolved]
  - Rib fracture [Recovering/Resolving]
  - Pneumonia [Recovered/Resolved]
  - Malaise [Not Recovered/Not Resolved]
  - Dyspnoea [Not Recovered/Not Resolved]
  - Migraine [Not Recovered/Not Resolved]
  - Contusion [Not Recovered/Not Resolved]

NARRATIVE: CASE EVENT DATE: 20150804
